FAERS Safety Report 7795148-8 (Version None)
Quarter: 2011Q3

REPORT INFORMATION
  Report Type: 
  Country: None (occurrence: None)
  Receive Date: 20110930
  Receipt Date: 20110923
  Transmission Date: 20111222
  Serious: Yes (Life-Threatening, Hospitalization)
  Sender: FDA-Public Use
  Company Number: GER/UKI/11/0021323

PATIENT
  Age: 69 Year
  Sex: Female

DRUGS (6)
  1. ACETAMINOPHEN W/ CODEINE [Concomitant]
  2. LEVOTHYROXINE SODIUM [Concomitant]
  3. IMIPRAMINE [Concomitant]
  4. TOLTERODINE TARTRATE (TOLTERODINE L-TARTRATE) [Concomitant]
  5. FLUOXETINE HYDROCHLORIDE [Suspect]
     Indication: DEPRESSION
     Dosage: 20 MG, ORAL
     Route: 048
  6. NAPROXEN [Suspect]
     Indication: ARTHRALGIA
     Dosage: 500 MG, ORAL
     Route: 048
     Dates: start: 19971224, end: 20110905

REACTIONS (6)
  - UPPER GASTROINTESTINAL HAEMORRHAGE [None]
  - MALAISE [None]
  - HAEMOGLOBIN DECREASED [None]
  - DIZZINESS [None]
  - HAEMATEMESIS [None]
  - GASTRIC ULCER [None]
